FAERS Safety Report 5671372-5 (Version None)
Quarter: 2008Q1

REPORT INFORMATION
  Report Type: 
  Country: None (occurrence: None)
  Receive Date: 20080313
  Receipt Date: 20080227
  Transmission Date: 20080703
  Serious: Yes (Other)
  Sender: FDA-Public Use
  Company Number: S08-ITA-00844-01

PATIENT
  Age: 43 Year
  Sex: Female

DRUGS (3)
  1. MONURIL (FOSFOMYCIN) [Suspect]
     Indication: CYSTITIS HAEMORRHAGIC
     Dosage: 3 G QD PO
     Route: 048
     Dates: start: 20080128, end: 20080211
  2. DEPAKIN (VALPROATE SODIUM) [Suspect]
     Indication: EPILEPSY
  3. CLONAZEPAM [Suspect]
     Indication: EPILEPSY

REACTIONS (3)
  - ABDOMINAL PAIN [None]
  - DIARRHOEA [None]
  - DRUG ADMINISTRATION ERROR [None]
